FAERS Safety Report 9152448 (Version 1)
Quarter: 2013Q1

REPORT INFORMATION
  Report Type: Spontaneous
  Country: US (occurrence: US)
  Receive Date: 20130308
  Receipt Date: 20130308
  Transmission Date: 20140127
  Serious: No
  Sender: FDA-Public Use
  Company Number: US-ASTRAZENECA-2013SE13247

PATIENT
  Sex: Female

DRUGS (10)
  1. CRESTOR [Suspect]
     Indication: BLOOD CHOLESTEROL ABNORMAL
     Route: 048
  2. LOVASTATIN [Concomitant]
  3. LIPITOR [Concomitant]
  4. PRAVACHOL [Concomitant]
  5. SIMVASTATIN [Concomitant]
  6. RED YEAST RICE [Concomitant]
  7. VICODIN [Concomitant]
  8. HYDROMORPHONE [Concomitant]
  9. TRAMADOL [Concomitant]
  10. OXYCODONE [Concomitant]

REACTIONS (6)
  - Chest pain [Unknown]
  - Malaise [Unknown]
  - Herpes zoster [Unknown]
  - Nerve injury [Unknown]
  - Blood cholesterol increased [Unknown]
  - Dizziness [Unknown]
